FAERS Safety Report 7048497-5 (Version None)
Quarter: 2010Q4

REPORT INFORMATION
  Report Type: 
  Country: None (occurrence: None)
  Receive Date: 20101015
  Receipt Date: 20101015
  Transmission Date: 20110411
  Serious: No
  Sender: FDA-Public Use
  Company Number: None

PATIENT

DRUGS (1)
  1. LOVENOX [Suspect]

REACTIONS (2)
  - RESPIRATORY ARREST [None]
  - RETROPERITONEAL HAEMORRHAGE [None]
